FAERS Safety Report 8271340-3 (Version None)
Quarter: 2012Q2

REPORT INFORMATION
  Report Type: 
  Country: None (occurrence: None)
  Receive Date: 20120410
  Receipt Date: 20120404
  Transmission Date: 20120825
  Serious: Yes (Disabling, Other)
  Sender: FDA-Public Use
  Company Number: US-PFIZER INC-2011096153

PATIENT
  Sex: Male

DRUGS (8)
  1. AMBIEN [Concomitant]
     Dosage: UNK
  2. VALIUM [Concomitant]
     Dosage: UNK
  3. NORCO [Concomitant]
     Dosage: UNK
  4. ZOCOR [Concomitant]
     Dosage: UNK
  5. NEURONTIN [Suspect]
     Indication: SPINAL CORD DISORDER
  6. NEURONTIN [Suspect]
     Indication: MUSCULOSKELETAL DISCOMFORT
     Dosage: 600 UNK, QHS (EVERY NIGHT BEDTIME)
  7. HYDROCHLOROTHIAZIDE [Concomitant]
     Dosage: UNK
  8. DURAGESIC-100 [Concomitant]
     Dosage: UNK

REACTIONS (1)
  - SPINAL CORD INJURY CERVICAL [None]
